FAERS Safety Report 26090082 (Version 1)
Quarter: 2025Q4

REPORT INFORMATION
  Report Type: Report from Study
  Country: GB (occurrence: None)
  Receive Date: 20251126
  Receipt Date: 20251126
  Transmission Date: 20260117
  Serious: Yes (Hospitalization)
  Sender: Alvotech
  Company Number: GB-ALVOTECHPMS-2025-ALVOTECHPMS-005686

PATIENT
  Age: 55 Year
  Sex: Female

DRUGS (1)
  1. USTEKINUMAB [Suspect]
     Active Substance: USTEKINUMAB
     Indication: Crohn^s disease
     Route: 058
     Dates: start: 20250811

REACTIONS (2)
  - Crohn^s disease [Not Recovered/Not Resolved]
  - Therapeutic response shortened [Unknown]
